FAERS Safety Report 5820721-3 (Version None)
Quarter: 2008Q3

REPORT INFORMATION
  Report Type: 
  Country: None (occurrence: None)
  Receive Date: 20080718
  Receipt Date: 20080718
  Transmission Date: 20090109
  Serious: Yes (Other)
  Sender: FDA-Public Use
  Company Number: None

PATIENT
  Sex: Female
  Weight: 61.2356 kg

DRUGS (1)
  1. CELEBREX [Suspect]
     Indication: PAIN
     Dosage: 1 TABLET DAILY PO
     Route: 048
     Dates: start: 20010101, end: 20071101

REACTIONS (2)
  - FATIGUE [None]
  - RENAL FAILURE [None]
